FAERS Safety Report 7676200-4 (Version None)
Quarter: 2011Q3

REPORT INFORMATION
  Report Type: 
  Country: None (occurrence: None)
  Receive Date: 20110811
  Receipt Date: 20110801
  Transmission Date: 20111222
  Serious: Yes (Hospitalization)
  Sender: FDA-Public Use
  Company Number: US-ELI_LILLY_AND_COMPANY-US201108000335

PATIENT
  Sex: Male
  Weight: 112.47 kg

DRUGS (15)
  1. BYETTA [Suspect]
     Dosage: 10 UG, BID
     Route: 058
  2. VICTOZA [Concomitant]
     Indication: TYPE 2 DIABETES MELLITUS
     Dosage: 18 UG, QD
     Route: 058
     Dates: start: 20110601, end: 20110701
  3. CENTRUM [Concomitant]
     Dosage: UNK, QD
     Route: 048
  4. NADOLOL [Concomitant]
     Dosage: 40 MG, QD
     Route: 048
  5. HYDROCHLOROTHIAZIDE [Concomitant]
     Dosage: 25 MG, QD
     Route: 048
  6. ACTONEL [Concomitant]
     Dosage: 150 MG, MONTHLY (1/M)
     Route: 048
  7. BYETTA [Suspect]
     Indication: TYPE 2 DIABETES MELLITUS
     Dosage: 5 UG, UNK
     Route: 058
  8. VITAMIN D [Concomitant]
     Dosage: 2000 U, UNK
  9. FERROUS SULFATE TAB [Concomitant]
     Dosage: 325 MG, BID
     Route: 048
  10. METFORMIN HCL [Concomitant]
     Indication: TYPE 2 DIABETES MELLITUS
     Dosage: 1000 MG, BID
     Route: 048
  11. BYETTA [Suspect]
     Dosage: 10 UG, BID
  12. DILTIAZEM [Concomitant]
     Dosage: 90 MG, BID
     Route: 048
  13. METOPROLOL TARTRATE [Concomitant]
     Dosage: 20 MG, QD
     Route: 048
  14. CALCIUM CARBONATE [Concomitant]
     Dosage: 600 MG, BID
     Route: 048
  15. WELCHOL [Concomitant]
     Indication: BLOOD CHOLESTEROL
     Dosage: 625 MG, QID
     Route: 048

REACTIONS (13)
  - GASTRIC VARICES HAEMORRHAGE [None]
  - BLOOD COUNT ABNORMAL [None]
  - NAUSEA [None]
  - NECK PAIN [None]
  - CHEST PAIN [None]
  - POLYP [None]
  - GASTROINTESTINAL HAEMORRHAGE [None]
  - ALTERED STATE OF CONSCIOUSNESS [None]
  - WEIGHT DECREASED [None]
  - LIVER DISORDER [None]
  - TREMOR [None]
  - SLUGGISHNESS [None]
  - DYSARTHRIA [None]
